FAERS Safety Report 8572609-5 (Version None)
Quarter: 2012Q3

REPORT INFORMATION
  Report Type: 
  Country: None (occurrence: None)
  Receive Date: 20120806
  Receipt Date: 20120731
  Transmission Date: 20120928
  Serious: Yes (Hospitalization)
  Sender: FDA-Public Use
  Company Number: CA-ABBOTT-12P-028-0959044-00

PATIENT
  Sex: Female

DRUGS (1)
  1. HUMIRA [Suspect]
     Indication: CROHN'S DISEASE
     Route: 058
     Dates: start: 20090728

REACTIONS (6)
  - OVARIAN CYST [None]
  - DIARRHOEA [None]
  - CONSTIPATION [None]
  - ABDOMINAL DISTENSION [None]
  - HEPATITIS VIRAL [None]
  - ABDOMINAL PAIN [None]
